FAERS Safety Report 14319569 (Version 1)
Quarter: 2017Q4

REPORT INFORMATION
  Report Type: Other
  Country: US (occurrence: US)
  Receive Date: 20171222
  Receipt Date: 20171222
  Transmission Date: 20180321
  Serious: Yes (Other)
  Sender: FDA-Public Use
  Company Number: US-INTERCEPT-PMOCA2017001606

PATIENT

DRUGS (1)
  1. OCALIVA [Suspect]
     Active Substance: OBETICHOLIC ACID
     Indication: BILIARY CIRRHOSIS PRIMARY
     Dosage: 5 MG, QD
     Dates: start: 20160825, end: 20160901

REACTIONS (4)
  - Hepatic failure [Unknown]
  - Drug prescribing error [Unknown]
  - Pruritus [Unknown]
  - Drug ineffective [Unknown]
